FAERS Safety Report 23962495 (Version 1)
Quarter: 2024Q2

REPORT INFORMATION
  Report Type: Spontaneous
  Country: US (occurrence: None)
  Receive Date: 20240610
  Receipt Date: 20240610
  Transmission Date: 20240716
  Serious: Yes (Other)
  Sender: FDA-Public Use
  Company Number: None

PATIENT
  Age: 53 Year
  Sex: Female
  Weight: 67.5 kg

DRUGS (1)
  1. DYSPORT [Suspect]
     Active Substance: ABOBOTULINUMTOXINA
     Indication: Skin wrinkling
     Dates: start: 20240528

REACTIONS (6)
  - Facial asymmetry [None]
  - Eye inflammation [None]
  - Headache [None]
  - Dizziness [None]
  - Anxiety [None]
  - Exposure via skin contact [None]

NARRATIVE: CASE EVENT DATE: 20240608
